FAERS Safety Report 6654898-7 (Version None)
Quarter: 2010Q1

REPORT INFORMATION
  Report Type: 
  Country: None (occurrence: None)
  Receive Date: 20100329
  Receipt Date: 20100322
  Transmission Date: 20100710
  Serious: Yes (Other)
  Sender: FDA-Public Use
  Company Number: US-BIOGENIDEC-2010BI006414

PATIENT
  Age: 25 Year
  Sex: Male

DRUGS (5)
  1. TYSABRI [Suspect]
     Indication: MULTIPLE SCLEROSIS
     Route: 042
     Dates: start: 20100115, end: 20100212
  2. EXFORGE [Concomitant]
     Indication: HYPERTENSION
     Dosage: DOSE UNIT:
  3. PROPRANOLOL [Concomitant]
     Indication: HYPERTENSION
  4. ERGOCALCIFEROL [Concomitant]
     Indication: VITAMIN D DEFICIENCY
  5. PROVIGIL [Concomitant]

REACTIONS (1)
  - ANAPHYLACTIC REACTION [None]
